FAERS Safety Report 12466032 (Version 5)
Quarter: 2016Q3

REPORT INFORMATION
  Report Type: Spontaneous
  Country: US (occurrence: US)
  Receive Date: 20160614
  Receipt Date: 20160906
  Transmission Date: 20161109
  Serious: No
  Sender: FDA-Public Use
  Company Number: US-LUNDBECK-DKLU2014116

PATIENT
  Age: 35 Year
  Sex: Female
  Weight: 75 kg

DRUGS (30)
  1. NORTHERA [Suspect]
     Active Substance: DROXIDOPA
     Dosage: 300 MG AND 200 MG TO MAKE UP TOTAL DOSE OF 500 MG TID
     Route: 048
     Dates: start: 20160801
  2. PROVENTIL, PROAIR, VENTOLIN [Concomitant]
     Indication: WHEEZING
  3. PROVENTIL, PROAIR, VENTOLIN [Concomitant]
     Indication: COUGH
  4. PREVACID [Concomitant]
     Active Substance: LANSOPRAZOLE
     Indication: PRODUCT USED FOR UNKNOWN INDICATION
     Route: 048
  5. ZANTAC 75 [Concomitant]
     Active Substance: RANITIDINE HYDROCHLORIDE
     Indication: PRODUCT USED FOR UNKNOWN INDICATION
     Route: 048
  6. ARTIFICIAL TEARS [Concomitant]
     Active Substance: GLYCERIN\HYPROMELLOSES\POLYETHYLENE GLYCOL 400
     Indication: PRODUCT USED FOR UNKNOWN INDICATION
     Route: 047
     Dates: start: 20130926
  7. NORTHERA [Suspect]
     Active Substance: DROXIDOPA
     Route: 065
     Dates: start: 20160825
  8. PROAMATINE [Suspect]
     Active Substance: MIDODRINE HYDROCHLORIDE
     Indication: PRODUCT USED FOR UNKNOWN INDICATION
     Route: 048
     Dates: start: 20160505
  9. NORTHERA [Suspect]
     Active Substance: DROXIDOPA
     Dosage: 300 MG AND 200 MG TO MAKE UP TOTAL DOSE OF 500 MG TID
     Route: 048
     Dates: start: 20160801
  10. ZYRTEC [Concomitant]
     Active Substance: CETIRIZINE HYDROCHLORIDE
     Indication: PRODUCT USED FOR UNKNOWN INDICATION
     Route: 048
  11. METAMUCIL ORANGE [Concomitant]
     Indication: PRODUCT USED FOR UNKNOWN INDICATION
     Dosage: 1 TABLESPOONFUL 1 TIME PER DAY
     Route: 048
  12. KENALOG, ARISTOCORT [Concomitant]
     Dosage: AVOID FACE AND SKIN FOLD AREAS.
     Route: 058
  13. VIACTIV [Concomitant]
     Active Substance: CALCIUM\VITAMIN D\VITAMIN K5
     Indication: PRODUCT USED FOR UNKNOWN INDICATION
     Route: 048
  14. ALLEGRA [Concomitant]
     Active Substance: FEXOFENADINE HYDROCHLORIDE
     Indication: PRODUCT USED FOR UNKNOWN INDICATION
     Route: 048
  15. SINGULAIR [Concomitant]
     Active Substance: MONTELUKAST SODIUM
     Indication: PRODUCT USED FOR UNKNOWN INDICATION
     Dosage: TAKE ONE DAY BEFORE ALLERGY SHOT AND THE DAY OF ALLERGY SHOT
     Route: 065
     Dates: start: 20151228
  16. KENALOG, ARISTOCORT [Concomitant]
     Dosage: AVOID FACE AND SKIN FOLD AREAS. LIMIT TO LESS THAN 3 WEEKS OF CONTINUOUS USE.
     Route: 058
     Dates: start: 20151008
  17. ENPRESSE-28 [Concomitant]
     Indication: PRODUCT USED FOR UNKNOWN INDICATION
     Route: 048
     Dates: start: 20160415
  18. DESYREL [Concomitant]
     Active Substance: TRAZODONE HYDROCHLORIDE
     Indication: PRODUCT USED FOR UNKNOWN INDICATION
     Route: 065
     Dates: start: 20151111
  19. RESTASIS [Concomitant]
     Active Substance: CYCLOSPORINE
     Indication: PRODUCT USED FOR UNKNOWN INDICATION
     Route: 047
  20. KENALOG, ARISTOCORT [Concomitant]
     Dosage: APPLY TO RASH TWICE DAILY FOR UP TO 2-3 WEEKS. THEN TWICE A WEEK FOR LONG TERM CONTROL. MIX WITH SAR
     Route: 058
  21. FLORINEF ACETATE [Concomitant]
     Active Substance: FLUDROCORTISONE ACETATE
     Indication: PRODUCT USED FOR UNKNOWN INDICATION
     Route: 048
     Dates: start: 20160617
  22. PROVENTIL, PROAIR, VENTOLIN [Concomitant]
     Indication: DYSPNOEA
     Dosage: 2 PUFFS EVERY 4 TO 6 HRS, PRN
     Route: 048
     Dates: start: 20151228
  23. EPIPEN [Concomitant]
     Active Substance: EPINEPHRINE
     Indication: ANAPHYLACTIC REACTION
     Dosage: 0.3MG/0.3ML SOAJ
     Route: 030
     Dates: start: 20151228
  24. NASACORT AQ [Concomitant]
     Active Substance: TRIAMCINOLONE ACETONIDE
     Indication: RHINITIS
     Dosage: USE 1 TO 2 SPRAYS IN EACH NOSTRIL DAILY AS NEEDED
     Route: 045
     Dates: start: 20140310
  25. KENALOG, ARISTOCORT [Concomitant]
     Indication: RASH
     Dosage: APPLY TO RASH TWICE DAILY FOR UP TO 2-3 WEEKS. THEN TWICE A WEEK FOR LONG TERM CONTROL. MIX WITH SAR
     Route: 058
     Dates: start: 20160524
  26. NORTHERA [Suspect]
     Active Substance: DROXIDOPA
     Indication: PRODUCT USED FOR UNKNOWN INDICATION
     Route: 065
     Dates: start: 20160515
  27. PROAMATINE [Suspect]
     Active Substance: MIDODRINE HYDROCHLORIDE
     Route: 048
  28. CLEOCIN-T [Concomitant]
     Indication: ACNE
     Route: 058
     Dates: start: 20160701
  29. ELESTAT [Concomitant]
     Active Substance: EPINASTINE HYDROCHLORIDE
     Indication: PRODUCT USED FOR UNKNOWN INDICATION
     Dosage: APPLY 1 DROP TO AFFECTED ETES DAILY AT 12:00. ONE DROP BOTH EYES BID
     Route: 047
  30. LYRICA [Concomitant]
     Active Substance: PREGABALIN
     Indication: PRODUCT USED FOR UNKNOWN INDICATION
     Route: 048
     Dates: start: 20160325

REACTIONS (17)
  - Temperature intolerance [Unknown]
  - Rash [Recovered/Resolved]
  - Confusional state [Unknown]
  - Miliaria [Recovered/Resolved]
  - Dyspnoea [Unknown]
  - Tremor [Unknown]
  - Peripheral coldness [Unknown]
  - Pallor [Unknown]
  - Sensory disturbance [Unknown]
  - Blood pressure diastolic increased [Unknown]
  - Dyskinesia [Unknown]
  - Malaise [Unknown]
  - Feeling hot [Recovered/Resolved]
  - Headache [Unknown]
  - Blood pressure fluctuation [Unknown]
  - Diarrhoea [Recovered/Resolved]
  - Menorrhagia [Unknown]

NARRATIVE: CASE EVENT DATE: 201605
